FAERS Safety Report 21803929 (Version 3)
Quarter: 2023Q1

REPORT INFORMATION
  Report Type: Report from Study
  Country: DE (occurrence: DE)
  Receive Date: 20230102
  Receipt Date: 20230111
  Transmission Date: 20230417
  Serious: Yes (Other)
  Sender: FDA-Public Use
  Company Number: DE-002147023-NVSC2022DE298013

PATIENT
  Age: 61 Year
  Sex: Male
  Weight: 81 kg

DRUGS (5)
  1. INCLISIRAN [Suspect]
     Active Substance: INCLISIRAN
     Indication: Hypercholesterolaemia
     Dosage: UNK
     Route: 058
     Dates: start: 20221121
  2. ROSUVASTATIN [Concomitant]
     Active Substance: ROSUVASTATIN
     Indication: Product used for unknown indication
     Dosage: 10 MG, QD
     Route: 065
     Dates: start: 20221121
  3. ASPIRIN [Concomitant]
     Active Substance: ASPIRIN
     Indication: Myocardial infarction
     Dosage: UNK
     Route: 065
     Dates: start: 2008
  4. ASPIRIN [Concomitant]
     Active Substance: ASPIRIN
     Indication: Coronary artery disease
  5. BIMATOPROST\TIMOLOL [Concomitant]
     Active Substance: BIMATOPROST\TIMOLOL
     Indication: Glaucoma
     Dosage: UNK
     Route: 065
     Dates: start: 202009

REACTIONS (1)
  - Hepatic enzyme abnormal [Recovering/Resolving]

NARRATIVE: CASE EVENT DATE: 20221223
